FAERS Safety Report 4591650-0 (Version None)
Quarter: 2005Q1

REPORT INFORMATION
  Report Type: 
  Country: None (occurrence: None)
  Receive Date: 20050218
  Receipt Date: 20050204
  Transmission Date: 20050727
  Serious: Yes (Other)
  Sender: FDA-Public Use
  Company Number: 2004104444

PATIENT
  Age: 66 Year
  Sex: Male

DRUGS (5)
  1. LOPID [Suspect]
     Indication: BLOOD TRIGLYCERIDES INCREASED
     Dosage: 1200 MG (600 MG, 2 IN 1 D),
     Dates: start: 20040504
  2. LOPID [Suspect]
     Indication: HYPERCHOLESTEROLAEMIA
     Dosage: 1200 MG (600 MG, 2 IN 1 D),
     Dates: start: 20040504
  3. ASPIRIN [Concomitant]
  4. PARAFON FORTE (CHLORZOXAZONE, PARACETAMOL) [Concomitant]
  5. KETOCONAZOLE [Concomitant]

REACTIONS (5)
  - ARTHRALGIA [None]
  - ASTHENIA [None]
  - MUSCLE DISORDER [None]
  - MYALGIA [None]
  - MYOGLOBIN URINE PRESENT [None]
